FAERS Safety Report 8537289-3 (Version None)
Quarter: 2012Q3

REPORT INFORMATION
  Report Type: 
  Country: None (occurrence: None)
  Receive Date: 20120725
  Receipt Date: 20120723
  Transmission Date: 20120928
  Serious: Yes (Hospitalization)
  Sender: FDA-Public Use
  Company Number: US-JNJFOC-20120604205

PATIENT
  Sex: Female
  Weight: 72.58 kg

DRUGS (5)
  1. LEUCOVORIN CALCIUM [Concomitant]
     Indication: PROPHYLAXIS
     Dates: start: 20090101
  2. SYNTHROID [Concomitant]
     Route: 048
  3. SIMPONI [Suspect]
     Indication: RHEUMATOID ARTHRITIS
     Route: 058
     Dates: start: 20090101
  4. METHOTREXATE [Concomitant]
     Indication: RHEUMATOID ARTHRITIS
     Route: 048
     Dates: start: 20090101
  5. PREDNISONE [Concomitant]
     Indication: RHEUMATOID ARTHRITIS
     Route: 048
     Dates: start: 19870101

REACTIONS (9)
  - SJOGREN'S SYNDROME [None]
  - MUSCLE SPASMS [None]
  - THROAT IRRITATION [None]
  - INJECTION SITE HAEMORRHAGE [None]
  - UNDERDOSE [None]
  - GASTROOESOPHAGEAL REFLUX DISEASE [None]
  - HYPERTENSION [None]
  - OSTEOARTHRITIS [None]
  - DEVICE MALFUNCTION [None]
